FAERS Safety Report 12142228 (Version 1)
Quarter: 2016Q1

REPORT INFORMATION
  Report Type: Spontaneous
  Country: DE (occurrence: DE)
  Receive Date: 20160303
  Receipt Date: 20160303
  Transmission Date: 20160526
  Serious: Yes (Other)
  Sender: FDA-Public Use
  Company Number: DE-TEVA-637559GER

PATIENT
  Age: 9 Decade
  Sex: Female
  Weight: 55 kg

DRUGS (3)
  1. AMLODIPIN [Suspect]
     Active Substance: AMLODIPINE BESYLATE
     Indication: MYOCARDIAL INFARCTION
     Route: 048
     Dates: start: 200407
  2. RAMIPRIL. [Concomitant]
     Active Substance: RAMIPRIL
  3. XARELTO [Concomitant]
     Active Substance: RIVAROXABAN
     Dates: start: 2014

REACTIONS (2)
  - Osteoporosis [Recovered/Resolved with Sequelae]
  - Spinal fracture [Recovered/Resolved with Sequelae]

NARRATIVE: CASE EVENT DATE: 201002
